FAERS Safety Report 11299545 (Version 1)
Quarter: 2015Q3

REPORT INFORMATION
  Report Type: Spontaneous
  Country: US (occurrence: US)
  Receive Date: 20150722
  Receipt Date: 20150722
  Transmission Date: 20151125
  Serious: No
  Sender: FDA-Public Use
  Company Number: US-ELI LILLY AND COMPANY-US201209003968

PATIENT
  Sex: Female

DRUGS (2)
  1. HUMATROPE [Suspect]
     Active Substance: SOMATROPIN
     Dosage: 4 MG, QD
     Route: 065
     Dates: start: 201003
  2. TURMERIC [Concomitant]
     Active Substance: TURMERIC
     Indication: INFLAMMATION

REACTIONS (2)
  - Night sweats [Unknown]
  - Flushing [Unknown]
